FAERS Safety Report 24603098 (Version 2)
Quarter: 2025Q3

REPORT INFORMATION
  Report Type: Report from Study
  Country: US (occurrence: US)
  Receive Date: 20241111
  Receipt Date: 20250802
  Transmission Date: 20251021
  Serious: Yes (Other)
  Sender: ALEXION PHARMACEUTICALS
  Company Number: US-AstraZeneca-CH-00714306A

PATIENT
  Sex: Male
  Weight: 72.574 kg

DRUGS (1)
  1. ACALABRUTINIB [Suspect]
     Active Substance: ACALABRUTINIB
     Indication: Mantle cell lymphoma
     Dosage: 100 MILLIGRAM, QD
     Dates: start: 202407

REACTIONS (8)
  - Neuropathy peripheral [Unknown]
  - Pyrexia [Unknown]
  - Chills [Unknown]
  - Tremor [Unknown]
  - Emotional disorder [Unknown]
  - Blood calcium increased [Unknown]
  - Chronic obstructive pulmonary disease [Unknown]
  - Cortisol increased [Unknown]
